FAERS Safety Report 25962121 (Version 2)
Quarter: 2025Q4

REPORT INFORMATION
  Report Type: Report from Study
  Country: EU (occurrence: EU)
  Receive Date: 20251027
  Receipt Date: 20251111
  Transmission Date: 20260118
  Serious: Yes (Other)
  Sender: NOVARTIS
  Company Number: GB-002147023-NVSC2025IE052805

PATIENT
  Age: 72 Year
  Sex: Female

DRUGS (2)
  1. COSENTYX [Suspect]
     Active Substance: SECUKINUMAB
     Indication: Psoriatic arthropathy
     Dosage: 300 MG, QMO
     Route: 065
     Dates: start: 20250227
  2. COSENTYX [Suspect]
     Active Substance: SECUKINUMAB
     Dosage: UNK MG, QMO
     Route: 065
     Dates: start: 20250403, end: 20250409

REACTIONS (4)
  - Angina pectoris [Unknown]
  - Diarrhoea [Unknown]
  - Abdominal pain upper [Unknown]
  - Adverse drug reaction [Unknown]

NARRATIVE: CASE EVENT DATE: 20250327
